FAERS Safety Report 9375404 (Version 1)
Quarter: 2013Q2

REPORT INFORMATION
  Report Type: Spontaneous
  Country: FR (occurrence: FR)
  Receive Date: 20130628
  Receipt Date: 20130628
  Transmission Date: 20140414
  Serious: Yes (Hospitalization)
  Sender: FDA-Public Use
  Company Number: FR-TEVA-415349ISR

PATIENT
  Age: 67 Year
  Sex: Male

DRUGS (10)
  1. FUROSEMIDE TEVA 40MG COMPRIME SUCABLE [Suspect]
     Dosage: 40 MILLIGRAM DAILY;
     Route: 048
     Dates: start: 20130517, end: 20130606
  2. REPAGLINIDE [Concomitant]
     Dosage: 12 MILLIGRAM DAILY;
     Route: 048
  3. KARDEGIC [Concomitant]
     Dosage: 300 MILLIGRAM DAILY;
     Route: 048
  4. METFORMIN TEVA 500MG [Concomitant]
     Dosage: 1000 MILLIGRAM DAILY;
     Route: 048
     Dates: start: 20130419
  5. PERINDOPRIL TEVA [Concomitant]
     Dosage: 8 MILLIGRAM DAILY;
     Route: 048
  6. LERCANIDIPINE (CHLORHYDRATE) [Concomitant]
     Dosage: 5 MILLIGRAM DAILY;
     Route: 048
  7. ALLOPURINOL TEVA 300 MG, SOFT CAPSULE [Concomitant]
     Dosage: 300 MILLIGRAM DAILY;
     Route: 048
  8. PRAVASTATINE TEVA 20MG, TABLET [Concomitant]
     Dosage: 20 MILLIGRAM DAILY;
     Route: 048
  9. LYRICA 50 MG [Concomitant]
     Dosage: 100 MILLIGRAM DAILY;
     Route: 048
  10. AFALGAN [Concomitant]

REACTIONS (1)
  - Cardiac failure [Recovered/Resolved]
